FAERS Safety Report 4609072-2 (Version None)
Quarter: 2005Q1

REPORT INFORMATION
  Report Type: 
  Country: None (occurrence: None)
  Receive Date: 20050311
  Receipt Date: 20050228
  Transmission Date: 20050727
  Serious: Yes (Hospitalization)
  Sender: FDA-Public Use
  Company Number: 200416364BCC

PATIENT
  Age: 33 Year
  Sex: Female
  Weight: 56.6996 kg

DRUGS (3)
  1. ALEVE [Suspect]
     Dosage: 440 MG QD, ORAL
     Route: 048
     Dates: start: 20010301, end: 20010530
  2. DEPAKOTE [Concomitant]
  3. PROLIXIN [Concomitant]

REACTIONS (2)
  - CEREBROVASCULAR ACCIDENT [None]
  - COUGH [None]
